FAERS Safety Report 18642522 (Version 2)
Quarter: 2021Q1

REPORT INFORMATION
  Report Type: Spontaneous
  Country: RU (occurrence: RU)
  Receive Date: 20201221
  Receipt Date: 20210107
  Transmission Date: 20210419
  Serious: Yes (Hospitalization)
  Sender: FDA-Public Use
  Company Number: RU-LUPIN PHARMACEUTICALS INC.-2020-10543

PATIENT
  Age: 4 Decade
  Sex: Male

DRUGS (10)
  1. HYDROCORTISONE. [Suspect]
     Active Substance: HYDROCORTISONE
     Dosage: UNK (IN THE EVENING OCCASIONALLY 2?3 TIMES A WEEK)
     Route: 065
     Dates: start: 2018
  2. PREDNISOLONE. [Suspect]
     Active Substance: PREDNISOLONE
     Indication: ADRENOGENITAL SYNDROME
     Dosage: 7.5 MILLIGRAM, QD ((1.5 TABLET) IN THE MORNING)
     Route: 065
  3. FLUDROCORTISONE [Suspect]
     Active Substance: FLUDROCORTISONE
     Dosage: 150 MICROGRAM
     Route: 065
  4. PREDNISOLONE. [Suspect]
     Active Substance: PREDNISOLONE
     Dosage: 2.5 MILLIGRAM, QD (IN THE MORNING)
     Route: 065
  5. FLUDROCORTISONE [Suspect]
     Active Substance: FLUDROCORTISONE
     Dosage: 0.05 MILLIGRAM, QD (IN MORNING ON EMPTY STOMACH)
     Route: 065
     Dates: start: 2018, end: 2018
  6. FLUDROCORTISONE [Suspect]
     Active Substance: FLUDROCORTISONE
     Indication: ADRENOGENITAL SYNDROME
     Dosage: 100 MICROGRAM, QD (IN THE MORNING)
     Route: 065
     Dates: start: 2018, end: 2018
  7. PREDNISOLONE. [Suspect]
     Active Substance: PREDNISOLONE
     Dosage: 10 MILLIGRAM, QD (1 TABLET IN THE MORNING AND IN THE EVENING)
     Route: 065
     Dates: start: 201802
  8. FLUDROCORTISONE [Suspect]
     Active Substance: FLUDROCORTISONE
     Dosage: 0.075 MILLIGRAM, QD (0.05MG IN MORNING ON EMPTY STOMACH AND 0.025MG IN AFTERNOON)
     Route: 065
     Dates: start: 2018
  9. HYDROCORTISONE. [Suspect]
     Active Substance: HYDROCORTISONE
     Indication: ADRENOGENITAL SYNDROME
     Dosage: 30 MILLIGRAM, QD (20 MG IN THE MORNING AND 10 MG IN THE AFTERNOON)
     Route: 065
     Dates: start: 2018, end: 2018
  10. PREDNISOLONE. [Suspect]
     Active Substance: PREDNISOLONE
     Dosage: 5 MILLIGRAM, BID (IN MORNING AND AFTERNOON AT ABOUT 4.00 PM)
     Route: 065
     Dates: start: 2018

REACTIONS (3)
  - Short stature [Unknown]
  - Obesity [Unknown]
  - Blood pressure increased [Recovered/Resolved]

NARRATIVE: CASE EVENT DATE: 2018
